FAERS Safety Report 4982802-6 (Version None)
Quarter: 2006Q2

REPORT INFORMATION
  Report Type: 
  Country: None (occurrence: None)
  Receive Date: 20060425
  Receipt Date: 20050118
  Transmission Date: 20061013
  Serious: Yes (Hospitalization, Other)
  Sender: FDA-Public Use
  Company Number: US-MERCK-0501USA02960

PATIENT
  Age: 50 Year
  Sex: Male
  Weight: 130 kg

DRUGS (10)
  1. VIOXX [Suspect]
     Indication: INTERVERTEBRAL DISC DISPLACEMENT
     Route: 048
     Dates: start: 20000101, end: 20030101
  2. LIPITOR [Concomitant]
     Indication: BLOOD CHOLESTEROL INCREASED
     Route: 065
     Dates: start: 19990101, end: 20020101
  3. PAXIL [Concomitant]
     Indication: DEPRESSION
     Route: 065
     Dates: start: 20000101, end: 20010101
  4. PAXIL [Concomitant]
     Indication: ANXIETY
     Route: 065
     Dates: start: 20000101, end: 20010101
  5. XANAX [Concomitant]
     Indication: DEPRESSION
     Route: 065
     Dates: start: 20000101, end: 20020101
  6. XANAX [Concomitant]
     Indication: ANXIETY
     Route: 065
     Dates: start: 20000101, end: 20020101
  7. ZYPREXA [Concomitant]
     Indication: DEPRESSION
     Route: 065
     Dates: start: 20030101
  8. ZYPREXA [Concomitant]
     Indication: ANXIETY
     Route: 065
     Dates: start: 20030101
  9. ASPIRIN [Concomitant]
     Route: 065
     Dates: start: 19990101
  10. LORTAB [Concomitant]
     Route: 065
     Dates: start: 20010101

REACTIONS (20)
  - ANGINA UNSTABLE [None]
  - ANXIETY [None]
  - ATRIAL FIBRILLATION [None]
  - BACK INJURY [None]
  - CARDIAC FAILURE CONGESTIVE [None]
  - CHEST PAIN [None]
  - CHRONIC FATIGUE SYNDROME [None]
  - CORONARY ARTERY DISEASE [None]
  - DEPRESSION [None]
  - DIASTOLIC DYSFUNCTION [None]
  - DYSPHAGIA [None]
  - EMOTIONAL DISTRESS [None]
  - METABOLIC SYNDROME [None]
  - MYOCARDIAL INFARCTION [None]
  - OEDEMA PERIPHERAL [None]
  - PANIC DISORDER [None]
  - SEXUAL DYSFUNCTION [None]
  - TENSION [None]
  - TRICUSPID VALVE INCOMPETENCE [None]
  - VENTRICULAR HYPOKINESIA [None]
